FAERS Safety Report 5866412-4 (Version None)
Quarter: 2008Q3

REPORT INFORMATION
  Report Type: 
  Country: None (occurrence: None)
  Receive Date: 20080901
  Receipt Date: 20080624
  Transmission Date: 20090109
  Serious: No
  Sender: FDA-Public Use
  Company Number: US-BAYER-200827357NA

PATIENT
  Age: 23 Year
  Sex: Female
  Weight: 73 kg

DRUGS (1)
  1. YAZ [Suspect]
     Indication: CONTRACEPTION
     Route: 048
     Dates: start: 20060101, end: 20080518

REACTIONS (4)
  - BREAST TENDERNESS [None]
  - FATIGUE [None]
  - NAUSEA [None]
  - WITHDRAWAL BLEEDING IRREGULAR [None]
